FAERS Safety Report 9807546 (Version 1)
Quarter: 2014Q1

REPORT INFORMATION
  Report Type: Spontaneous
  Country: US (occurrence: US)
  Receive Date: 20140110
  Receipt Date: 20140110
  Transmission Date: 20141002
  Serious: No
  Sender: FDA-Public Use
  Company Number: US-SANOFI-AVENTIS-2013SA014721

PATIENT
  Age: 74 Year
  Sex: Female

DRUGS (14)
  1. PLAVIX [Suspect]
     Dates: start: 1998
  2. GLIPIZIDE [Concomitant]
  3. METFORMIN [Concomitant]
  4. PLETAL [Concomitant]
  5. ALLEGRA-D [Concomitant]
  6. LYRICA [Concomitant]
  7. ADVAIR [Concomitant]
  8. OMEGA 3 [Concomitant]
  9. VESICARE [Concomitant]
  10. NASONEX [Concomitant]
  11. PRAVACHOL [Concomitant]
  12. ALTACE [Concomitant]
  13. AMLODIPINE BESILATE [Concomitant]
  14. SINGULAIR [Concomitant]

REACTIONS (1)
  - Memory impairment [Not Recovered/Not Resolved]
